FAERS Safety Report 4919936-8 (Version None)
Quarter: 2006Q1

REPORT INFORMATION
  Report Type: 
  Country: None (occurrence: None)
  Receive Date: 20060223
  Receipt Date: 20050520
  Transmission Date: 20060701
  Serious: Yes (Other)
  Sender: FDA-Public Use
  Company Number: PHEH2005US05835

PATIENT
  Age: 66 Year
  Sex: Male

DRUGS (11)
  1. ZOMETA [Suspect]
     Indication: MULTIPLE MYELOMA
     Dosage: 4MG QMO
     Dates: start: 20031021, end: 20050522
  2. INTERFERON [Concomitant]
     Dosage: 4 MU TIW
  3. CLARITIN [Concomitant]
  4. PAXIL [Concomitant]
     Dosage: 5 MG, UNK
  5. GEMFIBROZIL [Concomitant]
     Dosage: 600 MG, BID
  6. TESTOSTERONE [Concomitant]
     Dosage: 300 MG, TIW
  7. CELEBREX [Concomitant]
     Dosage: 200 MG, UNK
  8. COZAAR [Concomitant]
     Dosage: 50 MG, UNK
  9. GLUCOSAMINE SULFATE [Concomitant]
     Dosage: 100MG UNK
  10. MULTIVITAMIN [Concomitant]
  11. B-50 [Concomitant]

REACTIONS (7)
  - BONE DENSITY DECREASED [None]
  - BONE DISORDER [None]
  - GINGIVAL ULCERATION [None]
  - ORAL INFECTION [None]
  - OSTEONECROSIS [None]
  - PAIN [None]
  - TOOTH DISORDER [None]
